FAERS Safety Report 6106682-0 (Version None)
Quarter: 2009Q1

REPORT INFORMATION
  Report Type: 
  Country: None (occurrence: None)
  Receive Date: 20090305
  Receipt Date: 20090220
  Transmission Date: 20090719
  Serious: Yes (Hospitalization)
  Sender: FDA-Public Use
  Company Number: 237755J08USA

PATIENT
  Age: 35 Year
  Sex: Female
  Weight: 150 kg

DRUGS (2)
  1. REBIF [Suspect]
     Indication: MULTIPLE SCLEROSIS
     Dosage: 44 MCG, 4 IN 1 WEEKS, SUBCUTANEOUS
     Route: 058
     Dates: start: 20070720, end: 20080901
  2. BACLOFEN [Concomitant]

REACTIONS (4)
  - DISEASE PROGRESSION [None]
  - FACIAL PALSY [None]
  - MULTIPLE SCLEROSIS RELAPSE [None]
  - PANCREATITIS [None]
